FAERS Safety Report 4296400-3 (Version None)
Quarter: 2004Q1

REPORT INFORMATION
  Report Type: 
  Country: None (occurrence: None)
  Receive Date: 20040213
  Receipt Date: 20040213
  Transmission Date: 20041129
  Serious: Yes (Hospitalization)
  Sender: FDA-Public Use
  Company Number: None

PATIENT
  Sex: Female
  Weight: 67.1324 kg

DRUGS (8)
  1. COUMADIN [Suspect]
     Indication: AORTIC VALVE REPLACEMENT
     Dosage: 5 MG PO QD, PRIOR TO ADMISSION
     Route: 048
  2. AMBIEN [Concomitant]
  3. LOPRESSOR [Concomitant]
  4. LIPITOR [Concomitant]
  5. TAMOXIFEN [Concomitant]
  6. COZAAR [Concomitant]
  7. LEVOXYL [Concomitant]
  8. ZOLOFT [Concomitant]

REACTIONS (3)
  - INTERNATIONAL NORMALISED RATIO INCREASED [None]
  - OEDEMA PERIPHERAL [None]
  - PROTHROMBIN TIME PROLONGED [None]
